FAERS Safety Report 11154591 (Version 1)
Quarter: 2015Q2

REPORT INFORMATION
  Report Type: Spontaneous
  Country: US (occurrence: US)
  Receive Date: 20150602
  Receipt Date: 20150602
  Transmission Date: 20150821
  Serious: No
  Sender: FDA-Public Use
  Company Number: US-NOVEN PHARMACEUTICALS, INC.-US2015000030

PATIENT
  Age: 8 Year
  Sex: Female

DRUGS (4)
  1. STRATTERA [Concomitant]
     Active Substance: ATOMOXETINE HYDROCHLORIDE
  2. DAYTRANA [Suspect]
     Active Substance: METHYLPHENIDATE
     Indication: ATTENTION DEFICIT/HYPERACTIVITY DISORDER
     Dosage: USING 10MG (LOT NO. 76442, EXP DATE: JAN 2016) AND 30MG (LOT NO. 76913, EXP DATE: MAR 2016) TOGETHER
     Route: 062
     Dates: start: 20141221
  3. LAMICTAL [Concomitant]
     Active Substance: LAMOTRIGINE
     Dosage: 15 MG, BID
  4. ABILIFY [Concomitant]
     Active Substance: ARIPIPRAZOLE

REACTIONS (4)
  - No adverse event [Unknown]
  - Drug prescribing error [Unknown]
  - Wrong technique in drug usage process [Unknown]
  - Product adhesion issue [Unknown]
